FAERS Safety Report 5050388-6 (Version None)
Quarter: 2006Q3

REPORT INFORMATION
  Report Type: 
  Country: None (occurrence: None)
  Receive Date: 20060707
  Receipt Date: 20060627
  Transmission Date: 20061208
  Serious: Yes (Other)
  Sender: FDA-Public Use
  Company Number: 2006-06-1946

PATIENT
  Sex: Male

DRUGS (2)
  1. NASONEX [Suspect]
     Dosage: NASAL SPRAY
  2. DRUG NAME UNKNOWN (CATEGORY ONLY - NOT A DRUG ENTRY) [Concomitant]

REACTIONS (2)
  - AGEUSIA [None]
  - ANOSMIA [None]
